FAERS Safety Report 5582624-1 (Version None)
Quarter: 2008Q1

REPORT INFORMATION
  Report Type: 
  Country: None (occurrence: None)
  Receive Date: 20080107
  Receipt Date: 20071227
  Transmission Date: 20080703
  Serious: Yes (Other)
  Sender: FDA-Public Use
  Company Number: PHBS2007JP21276

PATIENT
  Age: 22 Year
  Sex: Male

DRUGS (4)
  1. RITALIN [Suspect]
     Indication: DEPRESSION
     Dosage: UNK, UNK
     Route: 048
     Dates: start: 20050101, end: 20071110
  2. DOGMATYL [Concomitant]
     Indication: DEPRESSION
     Route: 048
     Dates: start: 20050101
  3. DOGMATYL [Concomitant]
     Dosage: 20 TABLEST, UNK
     Route: 048
     Dates: start: 20071120
  4. PAXIL [Concomitant]
     Route: 048
     Dates: start: 20050101

REACTIONS (14)
  - APRAXIA [None]
  - ATONIC SEIZURES [None]
  - BLOOD CREATININE DECREASED [None]
  - CONVERSION DISORDER [None]
  - HAEMATOCRIT DECREASED [None]
  - HAEMOGLOBIN DECREASED [None]
  - MASKED FACIES [None]
  - PAIN IN JAW [None]
  - PARAESTHESIA [None]
  - PARAESTHESIA ORAL [None]
  - RED BLOOD CELL COUNT DECREASED [None]
  - SALIVARY HYPERSECRETION [None]
  - SELF-MEDICATION [None]
  - TREMOR [None]
